FAERS Safety Report 16931593 (Version 3)
Quarter: 2019Q4

REPORT INFORMATION
  Report Type: Report from Study
  Country: US (occurrence: US)
  Receive Date: 20191017
  Receipt Date: 20191105
  Transmission Date: 20200122
  Serious: Yes (Death, Hospitalization, Other)
  Sender: FDA-Public Use
  Company Number: US-GILEAD-2019-0433502

PATIENT
  Age: 32 Year
  Sex: Male

DRUGS (24)
  1. ZOFRAN [Concomitant]
     Active Substance: ONDANSETRON HYDROCHLORIDE
  2. ALBUTEROL SULFATE. [Concomitant]
     Active Substance: ALBUTEROL SULFATE
  3. FERROUS SULFATE. [Concomitant]
     Active Substance: FERROUS SULFATE
  4. DULCOLAX (BISACODYL) [Concomitant]
     Active Substance: BISACODYL
  5. MIRALAX [Concomitant]
     Active Substance: POLYETHYLENE GLYCOL 3350
  6. PULMOZYME [Concomitant]
     Active Substance: DORNASE ALFA
  7. XARELTO [Concomitant]
     Active Substance: RIVAROXABAN
  8. VITAMIN D [COLECALCIFEROL] [Concomitant]
     Active Substance: CHOLECALCIFEROL
  9. CREON [Concomitant]
     Active Substance: PANCRELIPASE AMYLASE\PANCRELIPASE LIPASE\PANCRELIPASE PROTEASE
  10. OXYCODONE HYDROCHLORIDE. [Concomitant]
     Active Substance: OXYCODONE HYDROCHLORIDE
  11. LIDOCAINE. [Concomitant]
     Active Substance: LIDOCAINE
  12. DRONABINOL. [Concomitant]
     Active Substance: DRONABINOL
  13. PROTONIX [OMEPRAZOLE] [Concomitant]
     Active Substance: OMEPRAZOLE
  14. TOBRAMYCIN. [Concomitant]
     Active Substance: TOBRAMYCIN
  15. VITAMIN E [TOCOPHERYL ACID SUCCINATE] [Concomitant]
  16. ADEMPAS [Concomitant]
     Active Substance: RIOCIGUAT
  17. FLONASE [MOMETASONE FUROATE] [Concomitant]
     Active Substance: MOMETASONE FUROATE
  18. TYLENOL [Concomitant]
     Active Substance: ACETAMINOPHEN
  19. ZANAFLEX [Concomitant]
     Active Substance: TIZANIDINE HYDROCHLORIDE
  20. GUAIFENESIN + CODEINE [Concomitant]
  21. OXYGEN. [Concomitant]
     Active Substance: OXYGEN
  22. AZTREONAM LYSINE [Suspect]
     Active Substance: AZTREONAM LYSINE
     Indication: CYSTIC FIBROSIS
     Dosage: 75 MG, TID; EVERY OTHER MONTH
     Route: 055
     Dates: start: 2019
  23. BENZONATATE. [Concomitant]
     Active Substance: BENZONATATE
  24. PEPCID [Concomitant]
     Active Substance: FAMOTIDINE

REACTIONS (3)
  - Death [Fatal]
  - Product dose omission [Unknown]
  - Intestinal obstruction [Unknown]

NARRATIVE: CASE EVENT DATE: 201911
